FAERS Safety Report 8156968-3 (Version None)
Quarter: 2012Q1

REPORT INFORMATION
  Report Type: 
  Country: None (occurrence: None)
  Receive Date: 20120103
  Receipt Date: 20111003
  Transmission Date: 20120608
  Serious: No
  Sender: FDA-Public Use
  Company Number: AE-2011-002035

PATIENT
  Age: 48 Year
  Sex: Male

DRUGS (8)
  1. PEGINTERFERON(PEGINTERFERON ALFA-2A) [Concomitant]
  2. NEURONTIN [Concomitant]
  3. INCIVEK [Suspect]
     Dosage: 2250 MG (750 MG,3 IN 1 D) ,ORAL
     Route: 047
     Dates: start: 20111001
  4. RIBAVIRIN [Concomitant]
  5. CORGARD [Concomitant]
  6. DEXILANT (PROTON PUMP INHIBITORS) [Concomitant]
  7. FENTANYL [Concomitant]
  8. HYDROCHLOROTHIAZIDE [Concomitant]

REACTIONS (4)
  - RASH [None]
  - ASTHENIA [None]
  - PRURITUS [None]
  - DIZZINESS [None]
